FAERS Safety Report 5749644-5 (Version None)
Quarter: 2008Q2

REPORT INFORMATION
  Report Type: 
  Country: None (occurrence: None)
  Receive Date: 20080527
  Receipt Date: 20080516
  Transmission Date: 20081010
  Serious: Yes (Life-Threatening, Hospitalization)
  Sender: FDA-Public Use
  Company Number: US-MERCK-0804USA05124

PATIENT
  Age: 15 Year
  Sex: Female

DRUGS (2)
  1. SINGULAIR [Suspect]
     Route: 048
     Dates: start: 20070912, end: 20080331
  2. SINGULAIR [Suspect]
     Route: 048
     Dates: start: 20000223, end: 20070911

REACTIONS (2)
  - DEPRESSION [None]
  - SUICIDE ATTEMPT [None]
